FAERS Safety Report 9383907 (Version 2)
Quarter: 2013Q3

REPORT INFORMATION
  Report Type: Spontaneous
  Country: JP (occurrence: JP)
  Receive Date: 20130705
  Receipt Date: 20130718
  Transmission Date: 20140515
  Serious: Yes (Hospitalization)
  Sender: FDA-Public Use
  Company Number: JP-SUCAMPO PHARMA AMERICAS, INC-SPI201300469

PATIENT
  Age: 32 Year
  Sex: Female
  Weight: 105 kg

DRUGS (6)
  1. AMITIZA [Suspect]
     Indication: CONSTIPATION
     Dosage: 24 MCG, BID
     Route: 048
     Dates: start: 20130109
  2. JZOLOFT [Suspect]
     Indication: DEPRESSION
     Dosage: 50 MG, QD
     Route: 048
     Dates: start: 20130417
  3. REBAMIPIDE [Suspect]
     Indication: ABDOMINAL DISCOMFORT
     Dosage: 100 MG, QD
     Route: 048
     Dates: start: 20130529
  4. LEXOTAN [Suspect]
     Indication: PERSONALITY DISORDER
     Dosage: 5 MG, BID
     Route: 048
     Dates: start: 20120827
  5. SENNOSIDE [Suspect]
     Indication: CONSTIPATION
     Dosage: 12 MG, QD
     Route: 048
     Dates: start: 20121109
  6. DEPAKENE-R [Suspect]
     Indication: PERSONALITY DISORDER
     Dosage: 100 MG, BID
     Route: 048

REACTIONS (2)
  - Altered state of consciousness [Recovered/Resolved]
  - Overdose [Recovered/Resolved]
